FAERS Safety Report 6993090-3 (Version None)
Quarter: 2010Q3

REPORT INFORMATION
  Report Type: 
  Country: None (occurrence: None)
  Receive Date: 20100917
  Receipt Date: 20091117
  Transmission Date: 20110219
  Serious: Yes (Other)
  Sender: FDA-Public Use
  Company Number: US-ASTRAZENECA-2009UW03711

PATIENT
  Age: 56 Year
  Sex: Male
  Weight: 90.7 kg

DRUGS (3)
  1. SEROQUEL [Suspect]
     Indication: BIPOLAR DISORDER
     Route: 048
     Dates: start: 20020901, end: 20070401
  2. SEROQUEL [Suspect]
     Indication: DEPRESSION
     Route: 048
     Dates: start: 20020901, end: 20070401
  3. RISPERDAL [Concomitant]
     Dates: start: 20040101

REACTIONS (6)
  - BLOOD CHOLESTEROL INCREASED [None]
  - CEREBROVASCULAR ACCIDENT [None]
  - GASTRITIS [None]
  - HYPERLIPIDAEMIA [None]
  - HYPERTENSION [None]
  - TYPE 2 DIABETES MELLITUS [None]
